FAERS Safety Report 8780392 (Version 1)
Quarter: 2012Q4

REPORT INFORMATION
  Report Type: Spontaneous
  Country: US (occurrence: None)
  Receive Date: 20120905
  Receipt Date: 20120905
  Transmission Date: 20130627
  Serious: Yes (Life-Threatening, Hospitalization)
  Sender: FDA-Public Use
  Company Number: None

PATIENT
  Age: 67 Year
  Sex: Female
  Weight: 75 kg

DRUGS (1)
  1. ROMIPLASTIM [Suspect]
     Route: 058
     Dates: start: 20120301, end: 20120807

REACTIONS (10)
  - Nausea [None]
  - Vomiting [None]
  - Diarrhoea [None]
  - Blood creatinine increased [None]
  - Blood potassium increased [None]
  - Oliguria [None]
  - Dialysis [None]
  - Platelet count increased [None]
  - Protein urine present [None]
  - Blood urine present [None]
